FAERS Safety Report 8328981-4 (Version None)
Quarter: 2012Q2

REPORT INFORMATION
  Report Type: 
  Country: None (occurrence: None)
  Receive Date: 20120502
  Receipt Date: 20120424
  Transmission Date: 20120825
  Serious: Yes (Hospitalization, Other)
  Sender: FDA-Public Use
  Company Number: JP-VERTEX PHARMACEUTICALS INC.-AE-2012-003270

PATIENT
  Age: 64 Year
  Sex: Female

DRUGS (8)
  1. REBETOL [Concomitant]
     Route: 048
     Dates: start: 20120127, end: 20120202
  2. PEGINTERFERON ALFA-2B [Concomitant]
     Indication: HEPATITIS C
     Route: 051
     Dates: start: 20120106, end: 20120112
  3. TELAVIC (TELAPREVIR) [Suspect]
     Indication: HEPATITIS C
     Route: 048
     Dates: start: 20120106, end: 20120126
  4. PEGINTERFERON ALFA-2B [Concomitant]
     Route: 051
     Dates: start: 20120113
  5. REBETOL [Concomitant]
     Indication: HEPATITIS C
     Route: 048
     Dates: start: 20120106, end: 20120126
  6. TELAVIC (TELAPREVIR) [Suspect]
     Route: 048
     Dates: start: 20120127, end: 20120330
  7. PEGINTERFERON ALFA-2B [Concomitant]
     Route: 051
  8. REBETOL [Concomitant]
     Route: 048
     Dates: start: 20120203

REACTIONS (6)
  - DECREASED APPETITE [None]
  - PLATELET COUNT DECREASED [None]
  - HAEMOGLOBIN DECREASED [None]
  - WHITE BLOOD CELL COUNT DECREASED [None]
  - BLOOD CREATININE INCREASED [None]
  - BLOOD URIC ACID INCREASED [None]
